FAERS Safety Report 4364215-3 (Version None)
Quarter: 2004Q2

REPORT INFORMATION
  Report Type: 
  Country: None (occurrence: None)
  Receive Date: 20040517
  Receipt Date: 20040223
  Transmission Date: 20050107
  Serious: No
  Sender: FDA-Public Use
  Company Number: S04-USA-01065-01

PATIENT
  Age: 79 Year
  Sex: Female

DRUGS (10)
  1. NAMENDA [Suspect]
     Indication: DEMENTIA ALZHEIMER'S TYPE
     Dosage: 5 MG QD PO
     Route: 048
     Dates: start: 20040209
  2. HALOPERIDOL [Concomitant]
  3. LANOXIN [Concomitant]
  4. LISINOPRIL [Concomitant]
  5. ALLEGRA [Concomitant]
  6. RISPERDAL [Concomitant]
  7. COUMADIN [Concomitant]
  8. DITROPAN [Concomitant]
  9. PREMARIN [Concomitant]
  10. EXELON [Concomitant]

REACTIONS (1)
  - SOMNOLENCE [None]
